FAERS Safety Report 8841726 (Version 1)
Quarter: 2012Q4

REPORT INFORMATION
  Report Type: Spontaneous
  Country: US (occurrence: None)
  Receive Date: 20121011
  Receipt Date: 20121011
  Transmission Date: 20130627
  Serious: Yes (Other)
  Sender: FDA-Public Use
  Company Number: 001367700A

PATIENT
  Age: 50 Year
  Sex: Female

DRUGS (1)
  1. MEANINGFUL BEAUTY DAY CREAM SPF 20 [Suspect]
     Dosage: Dermal twice daily
     Dates: start: 20120822, end: 20120904

REACTIONS (2)
  - Rash [None]
  - Pharyngeal oedema [None]
